FAERS Safety Report 5449604-8 (Version None)
Quarter: 2007Q3

REPORT INFORMATION
  Report Type: 
  Country: None (occurrence: None)
  Receive Date: 20070910
  Receipt Date: 20070903
  Transmission Date: 20080115
  Serious: Yes (Life-Threatening, Other)
  Sender: FDA-Public Use
  Company Number: TUK2007A00092

PATIENT
  Age: 68 Year
  Sex: Male

DRUGS (11)
  1. ACTOS [Suspect]
     Indication: DIABETES MELLITUS
     Dosage: 1 DF ORAL
     Route: 048
     Dates: start: 20070813, end: 20070815
  2. ASPIRIN [Concomitant]
  3. CODEINE PHOSPHATE AND ACETAMINOPHEN [Concomitant]
  4. GLICLAZIDE [Concomitant]
  5. ISOSORBIDE MONONITRATE [Concomitant]
  6. METFORMIN HCL [Concomitant]
  7. QUININE SULFATE [Concomitant]
  8. RAMIPRIL [Concomitant]
  9. RANITIDINE [Concomitant]
  10. ROSIGLITAZONE MALEATE [Concomitant]
  11. SIMVASTATIN [Concomitant]

REACTIONS (3)
  - ANGINA PECTORIS [None]
  - HEADACHE [None]
  - VISION BLURRED [None]
